FAERS Safety Report 9894110 (Version 2)
Quarter: 2014Q2

REPORT INFORMATION
  Report Type: Spontaneous
  Country: US (occurrence: US)
  Receive Date: 20140213
  Receipt Date: 20140418
  Transmission Date: 20141212
  Serious: Yes (Other)
  Sender: FDA-Public Use
  Company Number: US-PFIZER INC-2014036934

PATIENT
  Age: 48 Year
  Sex: Male
  Weight: 75.28 kg

DRUGS (11)
  1. LIPITOR [Suspect]
     Dosage: 20 MG, 1X/DAY
  2. NEURONTIN [Suspect]
     Dosage: 300 MG, 3X/DAY
  3. CHANTIX [Suspect]
     Dosage: 0.5 MG, 2X/DAY
     Dates: start: 20140213, end: 20140226
  4. PANTOPRAZOLE [Suspect]
     Dosage: 40 MG, 1X/DAY
  5. LISINOPRIL [Suspect]
     Dosage: 20 MG, 1X/DAY
  6. LOVAZA [Suspect]
     Dosage: 2 G, 2X/DAY
  7. MOBIC [Suspect]
     Dosage: 7.5 MG, 1X/DAY
  8. NEUPRO [Suspect]
     Dosage: 1 MG, 1X/DAY
     Route: 062
  9. NORCO [Suspect]
     Dosage: 10MG/ 325MG, 3X/DAY
  10. DOCUSATE SODIUM [Suspect]
     Dosage: 100 MG, 1X/DAY
  11. KETOCONAZOLE [Suspect]
     Dosage: UNK

REACTIONS (3)
  - Back pain [Recovering/Resolving]
  - Local swelling [Recovered/Resolved]
  - Pharyngeal oedema [Recovered/Resolved]
